FAERS Safety Report 4885304-0 (Version None)
Quarter: 2006Q1

REPORT INFORMATION
  Report Type: 
  Country: None (occurrence: None)
  Receive Date: 20060119
  Receipt Date: 20041123
  Transmission Date: 20060701
  Serious: Yes (Hospitalization, Other)
  Sender: FDA-Public Use
  Company Number: PHRM2004FR03434

PATIENT
  Age: 70 Year
  Sex: Male

DRUGS (5)
  1. GLEEVEC [Suspect]
     Indication: CHRONIC MYELOID LEUKAEMIA
     Dosage: 400 MG DAILY
     Route: 048
     Dates: start: 20040901, end: 20041026
  2. GLEEVEC [Suspect]
     Dosage: UNK, UNK
     Route: 048
     Dates: start: 20041103, end: 20041124
  3. FENOFIBRATE [Concomitant]
     Indication: HYPERCHOLESTEROLAEMIA
     Route: 048
     Dates: start: 20030101
  4. INIPOMP [Concomitant]
     Indication: HIATUS HERNIA
     Route: 048
  5. APROVEL [Concomitant]
     Indication: ESSENTIAL HYPERTENSION
     Route: 048
     Dates: start: 20030101

REACTIONS (10)
  - ANOREXIA [None]
  - BRONCHOALVEOLAR LAVAGE ABNORMAL [None]
  - DYSPNOEA EXERTIONAL [None]
  - HEADACHE [None]
  - INTERSTITIAL LUNG DISEASE [None]
  - LEUKOCYTOSIS [None]
  - PO2 DECREASED [None]
  - PYREXIA [None]
  - RESPIRATORY DISORDER [None]
  - RESPIRATORY FAILURE [None]
